FAERS Safety Report 5615428-1 (Version None)
Quarter: 2008Q1

REPORT INFORMATION
  Report Type: 
  Country: None (occurrence: None)
  Receive Date: 20080206
  Receipt Date: 20080131
  Transmission Date: 20080703
  Serious: Yes (Other)
  Sender: FDA-Public Use
  Company Number: FI-AVENTIS-200720252GDDC

PATIENT
  Age: 8 Year
  Sex: Male

DRUGS (3)
  1. LANTUS [Suspect]
     Route: 058
     Dates: start: 20040501
  2. OPTIPEN (INSULIN PUMP) [Suspect]
     Route: 058
     Dates: start: 20040501
  3. NOVORAPID [Concomitant]
     Route: 058
     Dates: start: 20040501

REACTIONS (4)
  - ABDOMINAL PAIN UPPER [None]
  - BLOOD KETONE BODY INCREASED [None]
  - PHARMACEUTICAL PRODUCT COMPLAINT [None]
  - VOMITING [None]
